FAERS Safety Report 5025966-0 (Version None)
Quarter: 2006Q2

REPORT INFORMATION
  Report Type: 
  Country: None (occurrence: None)
  Receive Date: 20060608
  Receipt Date: 20060502
  Transmission Date: 20061013
  Serious: Yes (Life-Threatening, Hospitalization)
  Sender: FDA-Public Use
  Company Number: DEPFP-E-20060002 - V001

PATIENT
  Age: 73 Year
  Sex: Female

DRUGS (3)
  1. NAVELBINE [Suspect]
     Indication: BREAST CANCER METASTATIC
     Dosage: 45 MG EVERY DAY INTRAVENOUS
     Route: 042
     Dates: start: 20050928, end: 20060318
  2. FLUOROURACIL [Suspect]
     Indication: BREAST CANCER METASTATIC
     Dosage: 4,600 G EVERY DAY INTRAVENOUS
     Route: 042
     Dates: start: 20050928, end: 20060318
  3. - CALCIUMFOLINAT ^GRY^ -CALCIUM FOLINATE, -S [Suspect]
     Indication: BREAST CANCER METASTATIC
     Dosage: 200 MG EVERY DAY INTRAVENOUS
     Route: 042
     Dates: start: 20050928, end: 20060318

REACTIONS (6)
  - DIZZINESS [None]
  - GINGIVAL BLEEDING [None]
  - HAEMATOMA [None]
  - PETECHIAE [None]
  - SUBDURAL HAEMATOMA [None]
  - THROMBOCYTOPENIA [None]
